FAERS Safety Report 6254142-9 (Version None)
Quarter: 2009Q3

REPORT INFORMATION
  Report Type: 
  Country: None (occurrence: None)
  Receive Date: 20090702
  Receipt Date: 20070522
  Transmission Date: 20100115
  Serious: Yes (Hospitalization)
  Sender: FDA-Public Use
  Company Number: US-ASTRAZENECA-2006UW09112

PATIENT
  Age: 15050 Day
  Sex: Female
  Weight: 83.5 kg

DRUGS (10)
  1. SEROQUEL [Suspect]
     Indication: SLEEP DISORDER
     Route: 048
     Dates: start: 20030801, end: 20040901
  2. SEROQUEL [Suspect]
     Dosage: 25-300 MG
     Route: 048
     Dates: start: 20030509, end: 20040913
  3. PAXIL [Concomitant]
     Dates: start: 20010501
  4. DEPO-ESTRADIOL [Concomitant]
  5. LISINOPRIL [Concomitant]
  6. PERCOCET [Concomitant]
  7. HYDROCODONE BITARTRATE [Concomitant]
  8. VICODIN [Concomitant]
  9. CELEBREX [Concomitant]
     Route: 048
     Dates: start: 20011004
  10. PRINIVIL [Concomitant]
     Route: 048
     Dates: start: 20011004

REACTIONS (5)
  - ALOPECIA [None]
  - DEHYDRATION [None]
  - MUSCULOSKELETAL PAIN [None]
  - OBESITY [None]
  - TYPE 2 DIABETES MELLITUS [None]
